FAERS Safety Report 4986416-3 (Version None)
Quarter: 2006Q2

REPORT INFORMATION
  Report Type: 
  Country: None (occurrence: None)
  Receive Date: 20060424
  Receipt Date: 20060406
  Transmission Date: 20061013
  Serious: Yes (Other)
  Sender: FDA-Public Use
  Company Number: TRP_0747_2006

PATIENT
  Sex: Male

DRUGS (2)
  1. RIBASPHERE/RIBAVIRIN/THREE RIVERS PHARMA/200MG [Suspect]
     Dosage: DF PO
     Route: 048
  2. PEGASYS [Suspect]
     Dosage: DF SC
     Route: 058

REACTIONS (3)
  - BLOOD PRESSURE INCREASED [None]
  - HEADACHE [None]
  - NASAL CONGESTION [None]
